FAERS Safety Report 4437787-8 (Version None)
Quarter: 2004Q3

REPORT INFORMATION
  Report Type: 
  Country: None (occurrence: None)
  Receive Date: 20040827
  Receipt Date: 20040813
  Transmission Date: 20050211
  Serious: Yes (Hospitalization)
  Sender: FDA-Public Use
  Company Number: 04P-056-0266590-00

PATIENT
  Age: 51 Year
  Sex: Female

DRUGS (16)
  1. DEPAKOTE [Suspect]
     Indication: BIPOLAR DISORDER
     Dosage: UNK : 500 MG, 1 IN 1 D, PER ORAL : 1000 MG, 1 IN 1 D, PER ORAL
     Route: 048
     Dates: end: 20030101
  2. DEPAKOTE [Suspect]
     Indication: DEPRESSION
     Dosage: UNK : 500 MG, 1 IN 1 D, PER ORAL : 1000 MG, 1 IN 1 D, PER ORAL
     Route: 048
     Dates: end: 20030101
  3. DEPAKOTE [Suspect]
     Indication: MOOD SWINGS
     Dosage: UNK : 500 MG, 1 IN 1 D, PER ORAL : 1000 MG, 1 IN 1 D, PER ORAL
     Route: 048
     Dates: end: 20030101
  4. DEPAKOTE [Suspect]
     Indication: PROPHYLAXIS
     Dosage: UNK : 500 MG, 1 IN 1 D, PER ORAL : 1000 MG, 1 IN 1 D, PER ORAL
     Route: 048
     Dates: end: 20030101
  5. DEPAKOTE [Suspect]
     Indication: BIPOLAR DISORDER
     Dosage: UNK : 500 MG, 1 IN 1 D, PER ORAL : 1000 MG, 1 IN 1 D, PER ORAL
     Route: 048
     Dates: start: 20040429, end: 20040501
  6. DEPAKOTE [Suspect]
     Indication: DEPRESSION
     Dosage: UNK : 500 MG, 1 IN 1 D, PER ORAL : 1000 MG, 1 IN 1 D, PER ORAL
     Route: 048
     Dates: start: 20040429, end: 20040501
  7. DEPAKOTE [Suspect]
     Indication: MOOD SWINGS
     Dosage: UNK : 500 MG, 1 IN 1 D, PER ORAL : 1000 MG, 1 IN 1 D, PER ORAL
     Route: 048
     Dates: start: 20040429, end: 20040501
  8. DEPAKOTE [Suspect]
     Indication: PROPHYLAXIS
     Dosage: UNK : 500 MG, 1 IN 1 D, PER ORAL : 1000 MG, 1 IN 1 D, PER ORAL
     Route: 048
     Dates: start: 20040429, end: 20040501
  9. DEPAKOTE [Suspect]
     Indication: BIPOLAR DISORDER
     Dosage: UNK : 500 MG, 1 IN 1 D, PER ORAL : 1000 MG, 1 IN 1 D, PER ORAL
     Route: 048
     Dates: start: 20040502, end: 20040510
  10. DEPAKOTE [Suspect]
     Indication: DEPRESSION
     Dosage: UNK : 500 MG, 1 IN 1 D, PER ORAL : 1000 MG, 1 IN 1 D, PER ORAL
     Route: 048
     Dates: start: 20040502, end: 20040510
  11. DEPAKOTE [Suspect]
     Indication: MOOD SWINGS
     Dosage: UNK : 500 MG, 1 IN 1 D, PER ORAL : 1000 MG, 1 IN 1 D, PER ORAL
     Route: 048
     Dates: start: 20040502, end: 20040510
  12. DEPAKOTE [Suspect]
     Indication: PROPHYLAXIS
     Dosage: UNK : 500 MG, 1 IN 1 D, PER ORAL : 1000 MG, 1 IN 1 D, PER ORAL
     Route: 048
     Dates: start: 20040502, end: 20040510
  13. CITALOPRAM HYDROBROMIDE [Concomitant]
  14. OLANZAPINE [Concomitant]
  15. CLONAZEPAM [Concomitant]
  16. AMPHOTERICIN B [Concomitant]

REACTIONS (15)
  - AMMONIA INCREASED [None]
  - COMA [None]
  - CONVERSION DISORDER [None]
  - DISORIENTATION [None]
  - DRUG LEVEL INCREASED [None]
  - DYSARTHRIA [None]
  - HAEMODYNAMIC INSTABILITY [None]
  - HYPERAMMONAEMIA [None]
  - HYPOREFLEXIA [None]
  - HYPOTONIA [None]
  - METABOLIC ENCEPHALOPATHY [None]
  - OVERDOSE [None]
  - PYREXIA [None]
  - SOMNOLENCE [None]
  - TACHYCARDIA [None]
